FAERS Safety Report 8173070-5 (Version None)
Quarter: 2012Q1

REPORT INFORMATION
  Report Type: 
  Country: None (occurrence: None)
  Receive Date: 20120229
  Receipt Date: 20120222
  Transmission Date: 20120608
  Serious: Yes (Life-Threatening)
  Sender: FDA-Public Use
  Company Number: FR-JNJFOC-20120209516

PATIENT
  Sex: Female

DRUGS (11)
  1. TRANXENE [Suspect]
     Indication: PRODUCT USED FOR UNKNOWN INDICATION
     Route: 048
  2. AKINETON [Suspect]
     Indication: PRODUCT USED FOR UNKNOWN INDICATION
     Route: 048
  3. AMITRIPTYLINE HCL [Suspect]
     Indication: PRODUCT USED FOR UNKNOWN INDICATION
     Route: 048
  4. SULFARLEM [Concomitant]
     Route: 048
  5. MEPRONIZINE [Concomitant]
     Route: 048
     Dates: end: 20110101
  6. ZOLPIDEM [Concomitant]
     Route: 048
     Dates: start: 20110101
  7. PREVISCAN (FLUINDIONE) [Concomitant]
     Route: 048
     Dates: start: 20091001, end: 20111110
  8. HALDOL [Suspect]
     Indication: PRODUCT USED FOR UNKNOWN INDICATION
     Dosage: 5-5-10MG SINCE SEVERAL YEARS
     Route: 048
  9. TERCIAN [Suspect]
     Indication: PRODUCT USED FOR UNKNOWN INDICATION
     Route: 048
  10. TRIMEPRAZINE TARTRATE [Suspect]
     Indication: PRODUCT USED FOR UNKNOWN INDICATION
     Route: 048
  11. RANITIDINE [Concomitant]
     Route: 048

REACTIONS (2)
  - PULMONARY HYPERTENSION [None]
  - PULMONARY EMBOLISM [None]
